FAERS Safety Report 8770981 (Version 2)
Quarter: 2012Q4

REPORT INFORMATION
  Report Type: 
  Country: US (occurrence: US)
  Receive Date: 20120906
  Receipt Date: 20121003
  Transmission Date: 20130627
  Serious: Yes (Hospitalization)
  Sender: FDA-Public Use
  Company Number: US-BAYER-2012-090141

PATIENT
  Age: 40 Year
  Sex: Female
  Weight: 55.33 kg

DRUGS (15)
  1. YAZ [Suspect]
     Indication: CONTRACEPTION
     Dosage: UNK
     Dates: start: 2008, end: 2012
  2. YAZ [Suspect]
     Indication: ACNE
  3. YAZ [Suspect]
     Indication: PREMENSTRUAL SYNDROME
  4. BEYAZ [Suspect]
     Indication: CONTRACEPTION
     Dosage: UNK
     Dates: start: 2008, end: 2012
  5. BEYAZ [Suspect]
     Indication: ACNE
  6. BEYAZ [Suspect]
     Indication: PREMENSTRUAL SYNDROME
  7. PRAVASTATIN [Concomitant]
  8. LISINOPRIL [Concomitant]
  9. NORCO [Concomitant]
  10. ALBUTEROL [Concomitant]
  11. LUNESTA [Concomitant]
     Dosage: 3 mg, UNK
     Dates: start: 201109, end: 201112
  12. VENTOLIN [Concomitant]
     Dosage: 90 mcg, UNK
     Route: 045
  13. TRIAMTERENE AND HYDROCHLOROTHIAZIDE [Concomitant]
     Dosage: 37.5-25mg
     Dates: start: 201110, end: 201112
  14. CENTRALLY ACTING SYMPATHOMIMETICS [Concomitant]
     Dosage: UNK;Daily prior to injury
  15. DEXTROAMPHETAMINE [Concomitant]
     Dosage: 20 mg, UNK
     Dates: start: 201109

REACTIONS (3)
  - Pulmonary embolism [None]
  - Myocardial ischaemia [None]
  - Mental disorder [None]
